FAERS Safety Report 23828277 (Version 1)
Quarter: 2024Q2

REPORT INFORMATION
  Report Type: Report from Study
  Country: CN (occurrence: CN)
  Receive Date: 20240508
  Receipt Date: 20240508
  Transmission Date: 20240716
  Serious: Yes (Other)
  Sender: FDA-Public Use
  Company Number: CN-JNJFOC-20240501109

PATIENT

DRUGS (5)
  1. DARZALEX [Suspect]
     Active Substance: DARATUMUMAB
     Indication: Bone disorder
     Dosage: ALSO GIVEN AS 800 MG
     Route: 042
  2. DARZALEX [Suspect]
     Active Substance: DARATUMUMAB
     Dosage: ALSO GIVEN AS 800 MG
     Route: 042
  3. DARZALEX [Suspect]
     Active Substance: DARATUMUMAB
     Dosage: ALSO GIVEN AS 800 MG
     Route: 042
  4. LENALIDOMIDE [Suspect]
     Active Substance: LENALIDOMIDE
     Indication: Bone disorder
     Dosage: 10 OR 25 MG ORALLY ON DAYS 1 TO 21
     Route: 048
  5. DEXAMETHASONE [Suspect]
     Active Substance: DEXAMETHASONE
     Indication: Bone disorder
     Dosage: ON DAYS 1, 2, 4, 5, 8, 9, 11, AND 12
     Route: 042

REACTIONS (17)
  - Cardiotoxicity [Unknown]
  - Nephropathy toxic [Unknown]
  - Hepatotoxicity [Unknown]
  - Neuropathy peripheral [Unknown]
  - Abdominal pain [Unknown]
  - Vascular headache [Unknown]
  - Rash [Unknown]
  - Mouth ulceration [Unknown]
  - Platelet count decreased [Unknown]
  - Neutrophil count decreased [Unknown]
  - Anaemia [Unknown]
  - Nausea [Unknown]
  - Diarrhoea [Unknown]
  - Constipation [Unknown]
  - Fatigue [Unknown]
  - Pyrexia [Unknown]
  - Off label use [Unknown]
